FAERS Safety Report 15493160 (Version 1)
Quarter: 2018Q4

REPORT INFORMATION
  Report Type: Spontaneous
  Country: US (occurrence: US)
  Receive Date: 20181012
  Receipt Date: 20181012
  Transmission Date: 20190205
  Serious: Yes (Other)
  Sender: FDA-Public Use
  Company Number: US-SA-2018SA110272

PATIENT
  Sex: Female

DRUGS (3)
  1. CYTOXAN [Concomitant]
     Active Substance: CYCLOPHOSPHAMIDE
     Dosage: UNK
  2. TAXOTERE [Suspect]
     Active Substance: DOCETAXEL
     Indication: BREAST CANCER FEMALE
     Dosage: UNK UNK,UNK
     Dates: start: 20090429, end: 20090429
  3. TAXOTERE [Suspect]
     Active Substance: DOCETAXEL
     Dosage: 120 UNK
     Route: 042
     Dates: start: 20090812, end: 20090812

REACTIONS (3)
  - Psychological trauma [Unknown]
  - Emotional distress [Unknown]
  - Alopecia [Recovering/Resolving]

NARRATIVE: CASE EVENT DATE: 2010
